FAERS Safety Report 9137900 (Version 1)
Quarter: 2013Q1

REPORT INFORMATION
  Report Type: Spontaneous
  Country: CO (occurrence: CO)
  Receive Date: 20130304
  Receipt Date: 20130304
  Transmission Date: 20140127
  Serious: Yes (Other)
  Sender: FDA-Public Use
  Company Number: CO-BAXTER-2013BAX007422

PATIENT
  Age: 36 Year
  Sex: Female

DRUGS (1)
  1. SOLUCION RINGER [Suspect]
     Indication: DEHYDRATION
     Route: 042
     Dates: start: 20130221, end: 20130221

REACTIONS (6)
  - Feeling cold [Recovered/Resolved]
  - Hyperhidrosis [Recovered/Resolved]
  - Tachycardia [Recovered/Resolved]
  - Dyspnoea [Recovered/Resolved]
  - Feeling of despair [Recovered/Resolved]
  - Exposure during pregnancy [Unknown]
